FAERS Safety Report 7576085-0 (Version None)
Quarter: 2011Q2

REPORT INFORMATION
  Report Type: 
  Country: None (occurrence: None)
  Receive Date: 20110628
  Receipt Date: 20110627
  Transmission Date: 20111010
  Serious: Yes (Hospitalization, Other)
  Sender: FDA-Public Use
  Company Number: ZA-BRISTOL-MYERS SQUIBB COMPANY-15736044

PATIENT
  Age: 17 Year
  Sex: Female
  Weight: 70 kg

DRUGS (9)
  1. ACETAMINOPHEN [Concomitant]
     Dates: start: 20110606
  2. MORPHINE [Concomitant]
     Route: 048
  3. SPRYCEL [Suspect]
     Indication: LEUKAEMIA
     Dosage: INTERRUPTED ON 07JUN2011
     Route: 048
     Dates: start: 20110509
  4. PIPERACILLIN AND TAZOBACTAM [Concomitant]
     Dates: start: 20110625
  5. ANDOLEX [Concomitant]
     Dosage: MOUTH WASH
  6. LACTULOSE [Concomitant]
  7. AMOXIL [Concomitant]
     Dates: start: 20110606
  8. AMIKACIN [Concomitant]
     Dates: start: 20110625
  9. VANCOMYCIN [Concomitant]
     Dates: start: 20110627

REACTIONS (7)
  - FEBRILE NEUTROPENIA [None]
  - PAIN [None]
  - PYREXIA [None]
  - ANAL ULCER [None]
  - BLAST CELL CRISIS [None]
  - NEUTROPENIA [None]
  - ORAL HERPES [None]
